FAERS Safety Report 21992249 (Version 1)
Quarter: 2023Q1

REPORT INFORMATION
  Report Type: Report from Study
  Country: GB (occurrence: GB)
  Receive Date: 20230214
  Receipt Date: 20230214
  Transmission Date: 20230418
  Serious: Yes (Other)
  Sender: FDA-Public Use
  Company Number: GB-002147023-PHHY2019GB091180

PATIENT
  Age: 52 Year
  Sex: Male

DRUGS (3)
  1. COSENTYX [Suspect]
     Active Substance: SECUKINUMAB
     Indication: Ankylosing spondylitis
     Dosage: 150 MG
     Route: 065
     Dates: start: 20171214, end: 20180114
  2. COSENTYX [Suspect]
     Active Substance: SECUKINUMAB
     Dosage: 150 MG
     Route: 065
     Dates: start: 20180114, end: 20200214
  3. COSENTYX [Suspect]
     Active Substance: SECUKINUMAB
     Dosage: 300 MG
     Route: 065
     Dates: start: 20200624

REACTIONS (12)
  - Angina unstable [Not Recovered/Not Resolved]
  - Iridocyclitis [Recovered/Resolved]
  - Chest pain [Recovered/Resolved]
  - Chest pain [Recovered/Resolved]
  - Paraesthesia [Recovered/Resolved]
  - Blood folate decreased [Recovered/Resolved]
  - Vitamin B12 decreased [Recovering/Resolving]
  - Vitamin D decreased [Recovered/Resolved]
  - Cervicogenic headache [Recovered/Resolved]
  - Tooth loss [Not Recovered/Not Resolved]
  - Chest pain [Recovered/Resolved]
  - Osteoporosis [Not Recovered/Not Resolved]

NARRATIVE: CASE EVENT DATE: 20180814
